FAERS Safety Report 9901800 (Version 3)
Quarter: 2014Q2

REPORT INFORMATION
  Report Type: Spontaneous
  Country: US (occurrence: US)
  Receive Date: 20140217
  Receipt Date: 20140515
  Transmission Date: 20141212
  Serious: Yes (Hospitalization)
  Sender: FDA-Public Use
  Company Number: US-GLAXOSMITHKLINE-A0947643A

PATIENT
  Age: 52 Year
  Sex: Male
  Weight: 143.6 kg

DRUGS (2)
  1. AVANDIA [Suspect]
     Indication: DIABETES MELLITUS
     Dosage: 4MG TWICE PER DAY
     Route: 048
     Dates: start: 20010331, end: 20090429
  2. AVANDAMET [Suspect]
     Indication: DIABETES MELLITUS
     Route: 048
     Dates: start: 1999

REACTIONS (8)
  - Cardiac failure congestive [Unknown]
  - Coronary artery bypass [Unknown]
  - Coronary artery disease [Unknown]
  - Coronary artery occlusion [Unknown]
  - Renal failure acute [Unknown]
  - Atrial fibrillation [Unknown]
  - Myocardial ischaemia [Unknown]
  - Myocardial infarction [Unknown]
